FAERS Safety Report 15954616 (Version 1)
Quarter: 2019Q1

REPORT INFORMATION
  Report Type: Spontaneous
  Country: GB (occurrence: GB)
  Receive Date: 20190213
  Receipt Date: 20190213
  Transmission Date: 20190417
  Serious: Yes (Other)
  Sender: FDA-Public Use
  Company Number: GB-TEVA-2019-GB-1011719

PATIENT
  Age: 56 Year
  Sex: Male
  Weight: 90 kg

DRUGS (3)
  1. VALSARTAN. [Concomitant]
     Active Substance: VALSARTAN
     Dosage: 80 MG
     Route: 065
  2. CO-AMOXICLAV [Suspect]
     Active Substance: AMOXICILLIN\CLAVULANATE POTASSIUM
     Indication: URINARY TRACT INFECTION
     Dosage: 1875 MILLIGRAM DAILY;
     Route: 048
     Dates: start: 20190112, end: 20190116
  3. DOXAZOSIN [Concomitant]
     Active Substance: DOXAZOSIN\DOXAZOSIN MESYLATE
     Dosage: 6 MG
     Route: 065

REACTIONS (9)
  - Swollen tongue [Recovering/Resolving]
  - Tongue discolouration [Recovering/Resolving]
  - Chest discomfort [Recovered/Resolved]
  - Balanoposthitis [Recovered/Resolved]
  - Abdominal distension [Recovered/Resolved]
  - Testicular swelling [Recovered/Resolved]
  - Penile swelling [Recovered/Resolved]
  - Tongue coated [Unknown]
  - Pruritus [Unknown]

NARRATIVE: CASE EVENT DATE: 20190113
